FAERS Safety Report 13628417 (Version 2)
Quarter: 2017Q3

REPORT INFORMATION
  Report Type: Report from Study
  Country: EG (occurrence: EG)
  Receive Date: 20170608
  Receipt Date: 20170719
  Transmission Date: 20171127
  Serious: Yes (Hospitalization)
  Sender: FDA-Public Use
  Company Number: EG-NOVOPROD-548704

PATIENT
  Age: 89 Year
  Sex: Female

DRUGS (6)
  1. BURINEX [Concomitant]
     Active Substance: BUMETANIDE
     Dosage: STARTED TWO WEEKS AGO
     Route: 048
  2. LOSARTAN. [Concomitant]
     Active Substance: LOSARTAN
     Dosage: UNK
     Route: 048
  3. MIXTARD 50 PENFILL [Suspect]
     Active Substance: INSULIN HUMAN
     Indication: TYPE 2 DIABETES MELLITUS
     Dosage: 60 IU BEFORE BREAKFAST AND 60 IU  BEFORE DINNER
     Route: 058
  4. ALDACTONE [Concomitant]
     Active Substance: SPIRONOLACTONE
     Dosage: STARTED TWO WEEKS AGO
     Route: 048
  5. NOVORAPID [Suspect]
     Active Substance: INSULIN ASPART
     Indication: TYPE 2 DIABETES MELLITUS
     Dosage: UNK
     Route: 065
  6. LASIX [Concomitant]
     Active Substance: FUROSEMIDE
     Dosage: 250 MG/DAY 1/2 TABLET PER DAY
     Route: 048

REACTIONS (3)
  - Diabetic hyperglycaemic coma [Recovered/Resolved]
  - Device use error [Unknown]
  - Incorrect dose administered by device [Unknown]
